FAERS Safety Report 9223822 (Version 2)
Quarter: 2013Q2

REPORT INFORMATION
  Report Type: Spontaneous
  Country: US (occurrence: US)
  Receive Date: 20130410
  Receipt Date: 20130426
  Transmission Date: 20140414
  Serious: No
  Sender: FDA-Public Use
  Company Number: US-TEVA-396807USA

PATIENT
  Age: 19 Year
  Sex: Female
  Weight: 65.83 kg

DRUGS (3)
  1. PLAN B ONE-STEP [Suspect]
     Indication: POST COITAL CONTRACEPTION
     Dosage: 1.5 MILLIGRAM DAILY;
     Route: 048
     Dates: start: 20130401, end: 20130401
  2. SPRINTEC [Suspect]
     Indication: CONTRACEPTION
  3. MINOCYCLINE [Suspect]
     Indication: ACNE
     Dates: end: 20130401

REACTIONS (2)
  - Pelvic pain [Recovered/Resolved]
  - Abdominal pain upper [Recovered/Resolved]
